FAERS Safety Report 23976382 (Version 1)
Quarter: 2024Q2

REPORT INFORMATION
  Report Type: Spontaneous
  Country: US (occurrence: US)
  Receive Date: 20240614
  Receipt Date: 20240614
  Transmission Date: 20240716
  Serious: No
  Sender: FDA-Public Use
  Company Number: US-PFIZER INC-PV202400075797

PATIENT
  Age: 70 Year
  Sex: Male

DRUGS (2)
  1. MEKTOVI [Suspect]
     Active Substance: BINIMETINIB
     Indication: Malignant melanoma
     Dosage: 5 DF, DAILY (TWO TABS IN AM, THREE TABS IN PM)
     Route: 048
     Dates: start: 20240126, end: 20240426
  2. BRAFTOVI [Suspect]
     Active Substance: ENCORAFENIB
     Indication: Malignant melanoma
     Dosage: 6 DF, DAILY
     Route: 048
     Dates: start: 20240126, end: 20240426

REACTIONS (2)
  - Sensitive skin [Unknown]
  - Fatigue [Unknown]

NARRATIVE: CASE EVENT DATE: 20240101
